FAERS Safety Report 5699229-4 (Version None)
Quarter: 2008Q2

REPORT INFORMATION
  Report Type: 
  Country: None (occurrence: None)
  Receive Date: 20080407
  Receipt Date: 20080407
  Transmission Date: 20081010
  Serious: Yes (Other)
  Sender: FDA-Public Use
  Company Number: None

PATIENT
  Age: 30 Year
  Sex: Female
  Weight: 135.6255 kg

DRUGS (1)
  1. PROVENTIL-HFA [Suspect]
     Indication: ASTHMA
     Dosage: 2 PUFFS AS NEEDED INHAL
     Route: 055
     Dates: start: 20070601, end: 20080405

REACTIONS (4)
  - DRUG INEFFECTIVE [None]
  - FEELING ABNORMAL [None]
  - PHARMACEUTICAL PRODUCT COMPLAINT [None]
  - TREMOR [None]
